FAERS Safety Report 8576492-3 (Version None)
Quarter: 2012Q3

REPORT INFORMATION
  Report Type: 
  Country: None (occurrence: None)
  Receive Date: 20120807
  Receipt Date: 20120723
  Transmission Date: 20120928
  Serious: Yes (Other)
  Sender: FDA-Public Use
  Company Number: IT-ROCHE-1094926

PATIENT
  Age: 48 Year
  Sex: Male

DRUGS (4)
  1. OXALIPLATIN [Concomitant]
     Indication: COLORECTAL CANCER
     Dosage: SIX COURSES
  2. FLUOROURACIL [Concomitant]
     Indication: COLORECTAL CANCER
     Dosage: SIX COURSES
  3. BEVACIZUMAB [Suspect]
     Indication: COLORECTAL CANCER
     Dosage: SIX COURSES
  4. LEUCOVORIN CALCIUM [Concomitant]
     Indication: COLORECTAL CANCER
     Dosage: SIX COURSES

REACTIONS (2)
  - DIVERTICULUM [None]
  - COLITIS [None]
